FAERS Safety Report 4785874-7 (Version None)
Quarter: 2005Q3

REPORT INFORMATION
  Report Type: 
  Country: None (occurrence: None)
  Receive Date: 20050930
  Receipt Date: 20050221
  Transmission Date: 20060218
  Serious: No
  Sender: FDA-Public Use
  Company Number: 2005FR-00305

PATIENT
  Age: 56 Year
  Sex: Female

DRUGS (2)
  1. FLUOXETINE [Suspect]
     Indication: DEPRESSION
     Dosage: 20 MG ORAL
     Route: 048
     Dates: start: 20040105, end: 20050211
  2. ESTRADIOL [Concomitant]

REACTIONS (1)
  - OPTIC NEURITIS [None]
